FAERS Safety Report 5969713-4 (Version None)
Quarter: 2008Q4

REPORT INFORMATION
  Report Type: 
  Country: None (occurrence: None)
  Receive Date: 20081126
  Receipt Date: 20081120
  Transmission Date: 20090506
  Serious: Yes (Hospitalization, Other)
  Sender: FDA-Public Use
  Company Number: US-PFIZER INC-2008091037

PATIENT
  Sex: Female
  Weight: 53.181 kg

DRUGS (5)
  1. CELEBREX [Suspect]
     Indication: PAIN IN EXTREMITY
     Dates: start: 19990101, end: 20020101
  2. CELEBREX [Suspect]
     Indication: MUSCULOSKELETAL PAIN
  3. CELEBREX [Suspect]
     Indication: ARTHRALGIA
  4. NORVASC [Suspect]
     Indication: HYPERTENSION
     Dates: start: 20010101
  5. COZAAR [Concomitant]
     Dosage: DAILY DOSE:50MG

REACTIONS (5)
  - AORTIC ANEURYSM [None]
  - BLOOD CALCIUM INCREASED [None]
  - FEELING ABNORMAL [None]
  - HYPERTENSION [None]
  - MUSCULOSKELETAL DISORDER [None]
